FAERS Safety Report 9679066 (Version 1)
Quarter: 2013Q4

REPORT INFORMATION
  Report Type: Spontaneous
  Country: GB (occurrence: None)
  Receive Date: 20131107
  Receipt Date: 20131107
  Transmission Date: 20140711
  Serious: Yes (Other)
  Sender: FDA-Public Use
  Company Number: AUR-APL-2013-09070

PATIENT
  Age: 50 Year
  Sex: Female
  Weight: 66.67 kg

DRUGS (1)
  1. GABAPENTIN [Suspect]
     Route: 048
     Dates: start: 20131001, end: 20131003

REACTIONS (9)
  - Anxiety [None]
  - Nausea [None]
  - Abdominal discomfort [None]
  - Dizziness [None]
  - Constipation [None]
  - Mental disorder [None]
  - Malaise [None]
  - Feeling abnormal [None]
  - Disorientation [None]
